FAERS Safety Report 11350461 (Version 1)
Quarter: 2015Q3

REPORT INFORMATION
  Report Type: Spontaneous
  Country: ES (occurrence: ES)
  Receive Date: 20150807
  Receipt Date: 20150807
  Transmission Date: 20151125
  Serious: Yes (Death)
  Sender: FDA-Public Use
  Company Number: ES-PFIZER INC-2015257201

PATIENT
  Age: 71 Year
  Sex: Male

DRUGS (1)
  1. PHENYTOIN SODIUM. [Suspect]
     Active Substance: PHENYTOIN SODIUM
     Dosage: 0.3

REACTIONS (5)
  - Dermatitis [Fatal]
  - Hepatosplenomegaly [Fatal]
  - Liver injury [Fatal]
  - Pyrexia [Fatal]
  - Skin exfoliation [Fatal]
